FAERS Safety Report 4636148-6 (Version None)
Quarter: 2005Q2

REPORT INFORMATION
  Report Type: 
  Country: None (occurrence: None)
  Receive Date: 20050325
  Receipt Date: 20050117
  Transmission Date: 20051028
  Serious: No
  Sender: FDA-Public Use
  Company Number: USA040670999

PATIENT
  Age: 56 Year
  Sex: Female
  Weight: 53 kg

DRUGS (19)
  1. FORTEO [Suspect]
     Indication: OSTEOPOROSIS
     Dosage: 20 UG DAY
     Dates: start: 20040610
  2. ZYRTEC [Concomitant]
  3. ACETAMINOPHEN [Concomitant]
  4. ACIPHEX [Concomitant]
  5. BENGAY ORIGINAL FORMULA PAIN RELIEVING [Concomitant]
  6. CALCIUM WITH VITAMIN D [Concomitant]
  7. CITRACAL (CALCIUM CITRATE) [Concomitant]
  8. COLACE (DOCUSATE SODIUM) [Concomitant]
  9. PREMARIN [Concomitant]
  10. PREMARIN H-C VAGINAL CREAM [Concomitant]
  11. VITAMIN B50, NATURAL [Concomitant]
  12. OXYMETAZOLINE [Concomitant]
  13. NASAL SALINE NASAL (SODIUM CHLORIDE) [Concomitant]
  14. SUPHEDRINE (PSEUDOEPHEDRINE HYDROCHLORIDE) [Concomitant]
  15. VICKS VAPOR INHALER (LEVMETAMFETAMINE) [Concomitant]
  16. ROBITUSSIN DM [Concomitant]
  17. VISINE (TETRYZOLINE HYDROCHLORIDE) [Concomitant]
  18. VITAMINS NOS [Concomitant]
  19. ESTRACE [Concomitant]

REACTIONS (18)
  - ARTHRALGIA [None]
  - BLOOD IRON DECREASED [None]
  - BLOOD SODIUM DECREASED [None]
  - BONE PAIN [None]
  - DIZZINESS [None]
  - DYSPNOEA [None]
  - EYE PAIN [None]
  - HEADACHE [None]
  - HEART RATE INCREASED [None]
  - HYPOAESTHESIA [None]
  - INJECTION SITE HAEMORRHAGE [None]
  - LABORATORY TEST ABNORMAL [None]
  - MIGRAINE [None]
  - MUSCLE SPASMS [None]
  - NAUSEA [None]
  - PAIN IN JAW [None]
  - PHOTOPHOBIA [None]
  - RED BLOOD CELL COUNT DECREASED [None]
